FAERS Safety Report 5749305-2 (Version None)
Quarter: 2008Q2

REPORT INFORMATION
  Report Type: 
  Country: None (occurrence: None)
  Receive Date: 20080527
  Receipt Date: 20080521
  Transmission Date: 20081010
  Serious: Yes (Other)
  Sender: FDA-Public Use
  Company Number: B0521505A

PATIENT

DRUGS (1)
  1. ORLISTAT [Suspect]
     Indication: OBESITY
     Route: 065

REACTIONS (1)
  - HEPATIC ENZYME INCREASED [None]
